FAERS Safety Report 24033291 (Version 1)
Quarter: 2024Q3

REPORT INFORMATION
  Report Type: Report from Study
  Country: US (occurrence: US)
  Receive Date: 20240701
  Receipt Date: 20240701
  Transmission Date: 20241017
  Serious: Yes (Hospitalization, Other)
  Sender: ABBVIE
  Company Number: US-ABBVIE-5819412

PATIENT
  Sex: Female

DRUGS (1)
  1. CREON [Suspect]
     Active Substance: PANCRELIPASE AMYLASE\PANCRELIPASE LIPASE\PANCRELIPASE PROTEASE
     Indication: Product used for unknown indication
     Dosage: 3 CAPS BEFORE MEALS; 2 CAPS BEFORE SNACKS?FORM STRENGTH: 24000 UNIT
     Route: 048

REACTIONS (2)
  - Pancreatic failure [Unknown]
  - Hospitalisation [Unknown]
